FAERS Safety Report 26063245 (Version 4)
Quarter: 2025Q4

REPORT INFORMATION
  Report Type: Spontaneous
  Country: EU (occurrence: EU)
  Receive Date: 20251119
  Receipt Date: 20251226
  Transmission Date: 20260118
  Serious: Yes (Hospitalization, Other)
  Sender: BAUSCH AND LOMB
  Company Number: EU-ARGENX-2025-ARGX-DE015628

PATIENT
  Age: 77 Year
  Sex: Male

DRUGS (10)
  1. AZATHIOPRINE [Suspect]
     Active Substance: AZATHIOPRINE
     Indication: Product used for unknown indication
     Dosage: UNK
     Route: 065
     Dates: end: 20250718
  2. AZATHIOPRINE [Suspect]
     Active Substance: AZATHIOPRINE
     Dosage: DOSE RE-INTRODUCED
     Route: 065
  3. VYVGART [Suspect]
     Active Substance: EFGARTIGIMOD ALFA-FCAB
     Indication: Myasthenia gravis
     Dosage: 800 MG
     Dates: start: 20250630, end: 20250630
  4. VYVGART [Suspect]
     Active Substance: EFGARTIGIMOD ALFA-FCAB
     Dosage: DOSE RE-INTRODUCED
     Route: 065
  5. VYVGART [Suspect]
     Active Substance: EFGARTIGIMOD ALFA-FCAB
     Indication: Myasthenia gravis
     Dosage: 1000 MG
     Dates: start: 20250707, end: 20250707
  6. VYVGART [Suspect]
     Active Substance: EFGARTIGIMOD ALFA-FCAB
     Dosage: 1000 MG, RESUMED (CYCLE 1)
     Dates: start: 20250811, end: 20250901
  7. VYVGART [Suspect]
     Active Substance: EFGARTIGIMOD ALFA-FCAB
     Dosage: 1000 MG, (CYCLE 2)
     Dates: start: 20250929, end: 20251020
  8. HUMAN IMMUNOGLOBULIN G [Suspect]
     Active Substance: HUMAN IMMUNOGLOBULIN G
     Indication: Product used for unknown indication
     Dosage: 145 G
     Dates: start: 20250730, end: 20250803
  9. MESTINON [Concomitant]
     Active Substance: PYRIDOSTIGMINE BROMIDE
     Indication: Product used for unknown indication
     Dosage: 3 X 120 MG + 180 MG (EXTENDED RELEASE)
     Route: 065
  10. PREDNISOLONE [Concomitant]
     Active Substance: PREDNISOLONE
     Indication: Product used for unknown indication
     Dosage: 7.5 MG, DAILY
     Route: 065

REACTIONS (6)
  - Papilloedema [Unknown]
  - Cyanopsia [Unknown]
  - Endocarditis [Unknown]
  - Transaminases increased [Unknown]
  - Off label use [Unknown]
  - Therapy change [Unknown]

NARRATIVE: CASE EVENT DATE: 20250720
